FAERS Safety Report 24605826 (Version 3)
Quarter: 2025Q2

REPORT INFORMATION
  Report Type: Spontaneous
  Country: US (occurrence: US)
  Receive Date: 20241111
  Receipt Date: 20250406
  Transmission Date: 20250716
  Serious: No
  Sender: SANOFI AVENTIS
  Company Number: US-SA-2024SA316498

PATIENT
  Age: 71 Year
  Sex: Female

DRUGS (2)
  1. DUPIXENT [Suspect]
     Active Substance: DUPILUMAB
     Indication: Dermatitis atopic
     Route: 058
     Dates: start: 202406, end: 202406
  2. DUPIXENT [Suspect]
     Active Substance: DUPILUMAB
     Dosage: 300 MG, QOW
     Route: 058
     Dates: start: 2024, end: 2024

REACTIONS (11)
  - Herpes zoster [Unknown]
  - Hand dermatitis [Unknown]
  - Condition aggravated [Unknown]
  - Product dose omission issue [Unknown]
  - Rash [Not Recovered/Not Resolved]
  - Pain [Unknown]
  - Pruritus [Unknown]
  - Sleep disorder due to a general medical condition [Unknown]
  - Rash pruritic [Recovering/Resolving]
  - Varicella [Unknown]
  - Eczema [Unknown]

NARRATIVE: CASE EVENT DATE: 20240101
